FAERS Safety Report 17359468 (Version 4)
Quarter: 2020Q4

REPORT INFORMATION
  Report Type: Spontaneous
  Country: US (occurrence: US)
  Receive Date: 20200203
  Receipt Date: 20201222
  Transmission Date: 20210113
  Serious: Yes (Other)
  Sender: FDA-Public Use
  Company Number: US-SA-2020SA023665

PATIENT

DRUGS (3)
  1. FABRAZYME [Suspect]
     Active Substance: AGALSIDASE BETA
     Indication: FABRY^S DISEASE
     Dosage: 55 MG, QOW
     Route: 042
     Dates: start: 20160609
  2. FABRAZYME [Suspect]
     Active Substance: AGALSIDASE BETA
     Dosage: 55 MG, QOW
     Route: 042
     Dates: start: 201706
  3. FABRAZYME [Suspect]
     Active Substance: AGALSIDASE BETA
     Dosage: 55 MG, QOW
     Route: 042
     Dates: start: 20200514

REACTIONS (8)
  - Weight decreased [Unknown]
  - Tooth loss [Unknown]
  - Illness [Unknown]
  - Depression [Not Recovered/Not Resolved]
  - Vomiting [Unknown]
  - Gastrointestinal carcinoma [Unknown]
  - Nausea [Not Recovered/Not Resolved]
  - End stage renal disease [Unknown]
